FAERS Safety Report 18532296 (Version 1)
Quarter: 2020Q4

REPORT INFORMATION
  Report Type: Spontaneous
  Country: DE (occurrence: DE)
  Receive Date: 20201123
  Receipt Date: 20201123
  Transmission Date: 20210114
  Serious: Yes (Other)
  Sender: FDA-Public Use
  Company Number: DE-AUROBINDO-AUR-APL-2020-057354

PATIENT

DRUGS (16)
  1. ARA-CELL [Suspect]
     Active Substance: CYTARABINE
     Dosage: 3000 MILLIGRAM/SQ. METER,DAY 1-2, CYCLE 4+6 (1 CYCLE = 3 WEEKS)
     Route: 042
  2. PREDNISOLONE. [Suspect]
     Active Substance: PREDNISOLONE
     Dosage: 3 MILLIGRAM,DAY 3-5, CYCLE 4+6 (1 CYCLE = 3 WEEKS), ICV/INTRACEREBROVENTRICULAR ROUTE WITH MTX
     Route: 065
  3. ARA-CELL [Suspect]
     Active Substance: CYTARABINE
     Indication: CENTRAL NERVOUS SYSTEM LYMPHOMA
     Dosage: 10 MILLIGRAM, DAY 5, CYCLE 5 (1 CYCLE = 2 WEEKS)
     Route: 065
  4. ARA-CELL [Suspect]
     Active Substance: CYTARABINE
     Dosage: 10 MILLIGRAM DAY 6, CYCLE 4+6 (1 CYCLE = 3 WEEKS),
     Route: 065
  5. METHOTREXATE. [Suspect]
     Active Substance: METHOTREXATE
     Indication: PRODUCT USED FOR UNKNOWN INDICATION
     Dosage: 2.5 MILLIGRAM, DAY 3-5, CYCLE 4+6 (1 CYCLE = 3 WEEKS)
     Route: 065
  6. MESNA. [Suspect]
     Active Substance: MESNA
     Indication: PROPHYLAXIS
     Dosage: ADMINISTERED WITH IFOSFAMIDE FOR PROTECTION
     Route: 065
  7. G-CSF [Suspect]
     Active Substance: GRANULOCYTE COLONY-STIMULATING FACTOR NOS
     Indication: PROPHYLAXIS
     Dosage: UNK UNK, CYCLICAL
     Route: 065
  8. METHOTREXATE. [Suspect]
     Active Substance: METHOTREXATE
     Dosage: 4000 MILLIGRAM/SQ. METER,DAY 1, CYCLE 1-3 (1 CYCLE = 2 WEEKS)
     Route: 042
  9. IFOSFAMIDE. [Suspect]
     Active Substance: IFOSFAMIDE
     Dosage: 800 MILLIGRAM/SQ. METER,DAY 2-4, CYCLE 1-3 (1 CYCLE = 2 WEEKS)
     Route: 042
  10. SULFAMETHOXAZOLE;TRIMETHOPRIM [Suspect]
     Active Substance: SULFAMETHOXAZOLE\TRIMETHOPRIM
     Indication: PRODUCT USED FOR UNKNOWN INDICATION
     Dosage: AT EACH CYCLE
     Route: 065
  11. RITUXIMAB. [Suspect]
     Active Substance: RITUXIMAB
     Indication: CENTRAL NERVOUS SYSTEM LYMPHOMA
     Dosage: 375 MILLIGRAM/SQ. METER, DAY 0, CYCLE 1-3 (1 CYCLE = 2 WEEKS)
     Route: 042
  12. METHOTREXATE. [Suspect]
     Active Substance: METHOTREXATE
     Dosage: 4000 MG/M2, DAY 1, CYCLE 5 (1 CYCLE = 2 WEEKS)
     Route: 042
  13. IFOSFAMIDE. [Suspect]
     Active Substance: IFOSFAMIDE
     Indication: CENTRAL NERVOUS SYSTEM LYMPHOMA
     Dosage: 800 MILLIGRAM/SQ. METER, DAY 2-4, CYCLE 5 (1 CYCLE = 2 WEEKS)
     Route: 042
  14. METHOTREXATE. [Suspect]
     Active Substance: METHOTREXATE
     Dosage: 2.5 MILLIGRAM,DAY 2-4, CYCLE 5 (1 CYCLE = 2 WEEKS)
     Route: 065
  15. PREDNISOLONE. [Suspect]
     Active Substance: PREDNISOLONE
     Indication: CENTRAL NERVOUS SYSTEM LYMPHOMA
     Dosage: 3 MG, DAY 2-4, CYCLE 5 (1 CYCLE = 2 WEEKS), ICV/INTRACEREBROVENTRICULAR ROUTE WITH MTX
     Route: 065
  16. ACICLOVIR [Suspect]
     Active Substance: ACYCLOVIR
     Indication: PRODUCT USED FOR UNKNOWN INDICATION
     Dosage: UNK UNK, CYCLICAL
     Route: 065

REACTIONS (1)
  - Neutropenia [Unknown]
